FAERS Safety Report 10365199 (Version 1)
Quarter: 2014Q3

REPORT INFORMATION
  Report Type: Spontaneous
  Country: US (occurrence: None)
  Receive Date: 20140804
  Receipt Date: 20140804
  Transmission Date: 20150326
  Serious: Yes (Life-Threatening, Hospitalization)
  Sender: FDA-Public Use
  Company Number: None

PATIENT
  Age: 39 Year
  Sex: Female
  Weight: 80.29 kg

DRUGS (1)
  1. XULANE [Suspect]
     Active Substance: ETHINYL ESTRADIOL\NORELGESTROMIN
     Indication: CONTRACEPTION
     Dosage: ONE PATCH AWEEK ONE PATCH A WEEK APPLIED AS MEDICATED PATCH TO SKIN
     Dates: start: 20140609, end: 20140621

REACTIONS (3)
  - Nausea [None]
  - Pulmonary embolism [None]
  - Hunger [None]

NARRATIVE: CASE EVENT DATE: 20140622
